FAERS Safety Report 9839260 (Version 1)
Quarter: 2014Q1

REPORT INFORMATION
  Report Type: Spontaneous
  Country: US (occurrence: None)
  Receive Date: 20140116
  Receipt Date: 20140116
  Transmission Date: 20141002
  Serious: Yes (Hospitalization)
  Sender: FDA-Public Use
  Company Number: SYM-2014-14785

PATIENT
  Age: 17 Year
  Sex: Male

DRUGS (3)
  1. BUPROPION HYDROCHLORIDE [Suspect]
     Indication: PRODUCT USED FOR UNKNOWN INDICATION
     Dosage: ORAL
     Route: 048
  2. CITALOPRAM (CITALOPRAM) (CITALOPRAM) [Concomitant]
  3. IBUPROFEN (IBUPROFEN) (IBUPROFEN) [Concomitant]

REACTIONS (3)
  - Convulsion [None]
  - Intentional drug misuse [None]
  - Hallucination, auditory [None]
